FAERS Safety Report 6424156-4 (Version None)
Quarter: 2009Q4

REPORT INFORMATION
  Report Type: 
  Country: None (occurrence: None)
  Receive Date: 20091029
  Receipt Date: 20091019
  Transmission Date: 20100525
  Serious: Yes (Other)
  Sender: FDA-Public Use
  Company Number: 2009AL006800

PATIENT
  Age: 55 Year
  Sex: Female

DRUGS (1)
  1. RANITIDINE [Suspect]
     Indication: DUODENOGASTRIC REFLUX
     Dosage: 300 MG; BID; PO
     Route: 048
     Dates: start: 20091003, end: 20091010

REACTIONS (4)
  - DIZZINESS [None]
  - DRUG INEFFECTIVE [None]
  - HALLUCINATION [None]
  - TREMOR [None]
